FAERS Safety Report 9765070 (Version 1)
Quarter: 2013Q4

REPORT INFORMATION
  Report Type: Spontaneous
  Country: US (occurrence: None)
  Receive Date: 20131216
  Receipt Date: 20131216
  Transmission Date: 20140711
  Serious: Yes (Hospitalization)
  Sender: FDA-Public Use
  Company Number: None

PATIENT
  Age: 60 Year
  Sex: Female
  Weight: 88.45 kg

DRUGS (1)
  1. CEFUROXIME [Suspect]
     Indication: CHRONIC OBSTRUCTIVE PULMONARY DISEASE
     Dosage: 1 PILL TWICE DAILY
     Route: 048
     Dates: start: 20131211, end: 20131211

REACTIONS (5)
  - Drug interaction [None]
  - Feeling hot [None]
  - Dyspnoea [None]
  - Hypoaesthesia oral [None]
  - Dry skin [None]
